FAERS Safety Report 9970025 (Version 2)
Quarter: 2014Q2

REPORT INFORMATION
  Report Type: Spontaneous
  Country: FR (occurrence: None)
  Receive Date: 20140304
  Receipt Date: 20140429
  Transmission Date: 20141212
  Serious: Yes (Disabling, Other)
  Sender: FDA-Public Use
  Company Number: 2014FR003047

PATIENT
  Age: 76 Year
  Sex: Male

DRUGS (6)
  1. PONATINIB (AP24534) TABLET [Suspect]
     Indication: CHRONIC MYELOID LEUKAEMIA
     Route: 048
     Dates: start: 20130515, end: 20130715
  2. ESOMEPRAZOL (ESOMPRAZOLE MAGNESIUM) [Concomitant]
  3. ONDANSETRON (ONDANSETRON HYDROCHLORIDE) [Concomitant]
  4. TRIATEC (RAMIPRIL) [Concomitant]
  5. DUOPLAVIN (ACETYLSALICYLIC ACID, CLOPIDOGREL BISULFATE) [Concomitant]
  6. PRAVASTATIN SODIUM (PRAVASTATIN SODIUM) [Concomitant]

REACTIONS (2)
  - Peripheral arterial occlusive disease [None]
  - Amputation [None]
